FAERS Safety Report 8175129-5 (Version None)
Quarter: 2012Q1

REPORT INFORMATION
  Report Type: 
  Country: None (occurrence: None)
  Receive Date: 20120229
  Receipt Date: 20120223
  Transmission Date: 20120608
  Serious: Yes (Congenital Anomaly)
  Sender: FDA-Public Use
  Company Number: GXKR2012DE000895

PATIENT
  Sex: Male

DRUGS (2)
  1. CITALOPRAM HYDROBROMIDE [Suspect]
     Dosage: MATERNAL DOSE: 10 MG/DAY
     Route: 063
  2. CITALOPRAM HYDROBROMIDE [Suspect]
     Dosage: MATERNAL DOSE: 10 MG/DAY
     Route: 064

REACTIONS (4)
  - CONGENITAL HYDRONEPHROSIS [None]
  - HYPOGLYCAEMIA [None]
  - FOETAL EXPOSURE DURING PREGNANCY [None]
  - EXPOSURE DURING BREAST FEEDING [None]
